FAERS Safety Report 24396225 (Version 1)
Quarter: 2024Q4

REPORT INFORMATION
  Report Type: Spontaneous
  Country: AT (occurrence: AT)
  Receive Date: 20241004
  Receipt Date: 20241004
  Transmission Date: 20250115
  Serious: Yes (Other)
  Sender: CELLTRION
  Company Number: None

PATIENT

DRUGS (1)
  1. RITUXIMAB [Suspect]
     Active Substance: RITUXIMAB
     Indication: Chemotherapy
     Dosage: UNK
     Route: 042
     Dates: start: 202303

REACTIONS (2)
  - Type IV hypersensitivity reaction [Unknown]
  - Drug eruption [Unknown]

NARRATIVE: CASE EVENT DATE: 20230328
